FAERS Safety Report 7830540-4 (Version None)
Quarter: 2011Q4

REPORT INFORMATION
  Report Type: 
  Country: None (occurrence: None)
  Receive Date: 20111021
  Receipt Date: 20111010
  Transmission Date: 20120403
  Serious: Yes (Other)
  Sender: FDA-Public Use
  Company Number: FR-JNJFOC-20111007457

PATIENT
  Age: 25 Year
  Sex: Female

DRUGS (2)
  1. CETIRIZINE HCL [Suspect]
     Route: 065
  2. CETIRIZINE HCL [Suspect]
     Indication: ANAPHYLACTIC REACTION
     Route: 065

REACTIONS (1)
  - DRUG INEFFECTIVE FOR UNAPPROVED INDICATION [None]
